FAERS Safety Report 4394863-6 (Version None)
Quarter: 2004Q3

REPORT INFORMATION
  Report Type: 
  Country: None (occurrence: None)
  Receive Date: 20040707
  Receipt Date: 20040624
  Transmission Date: 20050211
  Serious: Yes (Hospitalization, Other)
  Sender: FDA-Public Use
  Company Number: 237573

PATIENT
  Age: 69 Year
  Sex: Female
  Weight: 50 kg

DRUGS (10)
  1. INNOLET 30R CHU(INSULIN HUMAN)SUSPENSION FOR INJECTION, 100IU/ML [Suspect]
     Indication: DIABETES MELLITUS
     Dosage: SUBCUTANEOUS
     Route: 058
     Dates: start: 20040513, end: 20040524
  2. HUMULIN (INSULIN ISOPHANE, HUMAN BIOSYNTHETIC) [Concomitant]
  3. UBRETID (DISTIGMINE BROMIDE) [Concomitant]
  4. FOY(GABEXATE MESILATE) [Concomitant]
  5. HUMACART-N [Concomitant]
  6. MEROPEN (MEROPENEM) [Concomitant]
  7. FAMOTIDINE [Concomitant]
  8. ASPIRIN [Concomitant]
  9. CEROCRAL (IFENPRODIL TARTRATE) [Concomitant]
  10. MAGNESIUM OXIDE (MAGNESIUM OXIDE) [Concomitant]

REACTIONS (1)
  - EOSINOPHIL COUNT INCREASED [None]
